FAERS Safety Report 18367333 (Version 4)
Quarter: 2021Q3

REPORT INFORMATION
  Report Type: Report from Study
  Country: JP (occurrence: JP)
  Receive Date: 20201009
  Receipt Date: 20210924
  Transmission Date: 20211014
  Serious: Yes (Hospitalization, Other)
  Sender: FDA-Public Use
  Company Number: JP-JNJFOC-A-CH2012-74317

PATIENT
  Age: 16 Year
  Sex: Female

DRUGS (34)
  1. BRAZAVES [Suspect]
     Active Substance: MIGLUSTAT
     Dosage: 300 MG, QD
     Route: 048
     Dates: start: 20130118, end: 20130207
  2. LAMICTAL [Concomitant]
     Active Substance: LAMOTRIGINE
     Route: 050
     Dates: start: 20130514, end: 20130613
  3. LAMICTAL [Concomitant]
     Active Substance: LAMOTRIGINE
     Route: 050
     Dates: start: 20130614
  4. RIVOTRIL [Concomitant]
     Active Substance: CLONAZEPAM
     Route: 050
     Dates: start: 20130301, end: 20200715
  5. BAKTAR [Concomitant]
     Active Substance: SULFAMETHOXAZOLE\TRIMETHOPRIM
     Indication: INFECTION PROPHYLAXIS
     Route: 050
     Dates: start: 20120611
  6. FURSULTIAMINE [Concomitant]
     Active Substance: FURSULTIAMINE
     Indication: HYPOVITAMINOSIS
     Route: 050
     Dates: start: 20120611, end: 20180909
  7. JUVELA                             /00110502/ [Concomitant]
     Active Substance: .ALPHA.-TOCOPHEROL ACETATE
     Indication: HYPOVITAMINOSIS
     Route: 050
     Dates: start: 20120611, end: 20180909
  8. EPINASTINE. [Concomitant]
     Active Substance: EPINASTINE HYDROCHLORIDE
     Route: 048
     Dates: end: 20170709
  9. BRAZAVES [Suspect]
     Active Substance: MIGLUSTAT
     Dosage: 200 MG, TID
     Route: 048
     Dates: start: 20140609, end: 20160515
  10. TEGRETOL [Concomitant]
     Active Substance: CARBAMAZEPINE
     Indication: EPILEPSY
     Route: 050
     Dates: start: 20071113, end: 20140606
  11. MYOCALM                            /00337701/ [Concomitant]
     Indication: MYOCLONUS
     Route: 050
     Dates: start: 20090710, end: 20200715
  12. LEVOCARNITINE HYDROCHLORIDE [Concomitant]
     Active Substance: LEVOCARNITINE HYDROCHLORIDE
     Indication: PROPHYLAXIS
     Route: 050
     Dates: start: 20120611
  13. SHOSEIRYUTO [Concomitant]
     Active Substance: EPHEDRA SINICA STEM\HERBALS
     Route: 048
     Dates: end: 20171112
  14. DEPAKENE [Concomitant]
     Active Substance: VALPROIC ACID
     Route: 050
     Dates: start: 20170710, end: 20200715
  15. BRAZAVES [Suspect]
     Active Substance: MIGLUSTAT
     Route: 048
     Dates: start: 20160516
  16. RIVOTRIL [Concomitant]
     Active Substance: CLONAZEPAM
     Indication: EPILEPSY
     Route: 050
     Dates: start: 20070830
  17. CONTOL                             /00011501/ [Concomitant]
     Indication: ANXIETY DISORDER
     Route: 050
     Dates: start: 20090605
  18. DL?METHIONINE W/GLYCINE/GLYCYRRHIZIC ACID [Concomitant]
     Indication: LIVER DISORDER
     Route: 050
     Dates: start: 20110930
  19. GASMOTIN [Concomitant]
     Active Substance: MOSAPRIDE CITRATE
     Indication: GASTRITIS
     Dosage: 5/3MGX3TIMES/DAY
     Route: 050
     Dates: start: 20120611, end: 20200715
  20. CINAL [Concomitant]
     Indication: HYPOVITAMINOSIS
     Route: 050
     Dates: start: 20120611, end: 20180909
  21. LEVOCARNITINE HYDROCHLORIDE [Concomitant]
     Active Substance: LEVOCARNITINE HYDROCHLORIDE
     Route: 050
     Dates: start: 20130315, end: 20200715
  22. BRAZAVES [Suspect]
     Active Substance: MIGLUSTAT
     Dosage: 400 MG, QD
     Route: 048
     Dates: start: 20130208, end: 20131217
  23. BRAZAVES [Suspect]
     Active Substance: MIGLUSTAT
     Dosage: 100 MG, QD
     Route: 048
     Dates: start: 20140114, end: 20140209
  24. BRAZAVES [Suspect]
     Active Substance: MIGLUSTAT
     Route: 048
     Dates: start: 20160516, end: 20200715
  25. LAMICTAL [Concomitant]
     Active Substance: LAMOTRIGINE
     Indication: EPILEPSY
     Route: 050
     Dates: start: 20100507
  26. DEPAKENE [Concomitant]
     Active Substance: VALPROIC ACID
     Indication: EPILEPSY
     Route: 050
     Dates: start: 20100817
  27. DEPAKENE [Concomitant]
     Active Substance: VALPROIC ACID
     Route: 050
     Dates: start: 20170515, end: 20170709
  28. LIFOROS [Concomitant]
     Active Substance: LACTULOSE
     Route: 048
     Dates: end: 20180408
  29. BRAZAVES [Suspect]
     Active Substance: MIGLUSTAT
     Indication: NIEMANN-PICK DISEASE
     Dosage: 200 MG, QD
     Route: 048
     Dates: start: 20120611, end: 20130117
  30. BRAZAVES [Suspect]
     Active Substance: MIGLUSTAT
     Dosage: 200 MG, BID
     Route: 048
     Dates: start: 20140210, end: 20140608
  31. VITANEURIN                         /02072701/ [Concomitant]
     Indication: HYPOVITAMINOSIS
     Route: 051
     Dates: start: 20120611, end: 20180909
  32. RECOMODULIN [Concomitant]
     Active Substance: THROMBOMODULIN ALFA
     Indication: DISSEMINATED INTRAVASCULAR COAGULATION
     Route: 042
     Dates: start: 20131217, end: 20131218
  33. MIYA?BM [Concomitant]
     Active Substance: CLOSTRIDIUM BUTYRICUM SPORES STRAIN M-55
     Route: 048
     Dates: end: 20200715
  34. OXYGEN. [Concomitant]
     Active Substance: OXYGEN
     Dosage: DOSE UNKNOWN
     Route: 055

REACTIONS (12)
  - Hypotension [Recovered/Resolved]
  - Epilepsy [Recovering/Resolving]
  - Decubitus ulcer [Recovered/Resolved]
  - Transfusion [Recovered/Resolved]
  - Pyrexia [Recovered/Resolved]
  - Diarrhoea [Recovering/Resolving]
  - Gamma-glutamyltransferase increased [Recovered/Resolved]
  - Sepsis [Recovered/Resolved]
  - Haematochezia [Unknown]
  - Clostridium test positive [Unknown]
  - Inflammation [Recovered/Resolved]
  - Disseminated intravascular coagulation [Recovered/Resolved]

NARRATIVE: CASE EVENT DATE: 20120613
